FAERS Safety Report 4767640-1 (Version None)
Quarter: 2005Q3

REPORT INFORMATION
  Report Type: 
  Country: None (occurrence: None)
  Receive Date: 20050909
  Receipt Date: 20050901
  Transmission Date: 20060218
  Serious: Yes (Hospitalization)
  Sender: FDA-Public Use
  Company Number: 2005AL002410

PATIENT
  Age: 93 Year
  Sex: Female

DRUGS (5)
  1. SERAX [Suspect]
     Dosage: 10 MG;QD; PO
     Route: 048
  2. EXELON ({NULL}) [Suspect]
     Dosage: 3 MG;QD; PO
     Route: 048
     Dates: start: 20030101
  3. DOLIPRANE [Concomitant]
  4. LEVOTHYROXINE SODIUM [Concomitant]
  5. CALCEOS [Concomitant]

REACTIONS (11)
  - ATRIOVENTRICULAR BLOCK [None]
  - BUNDLE BRANCH BLOCK RIGHT [None]
  - CHEST PAIN [None]
  - DRUG INEFFECTIVE [None]
  - EXTRASYSTOLES [None]
  - HYPOTENSION [None]
  - LEUKOCYTURIA [None]
  - LOSS OF CONSCIOUSNESS [None]
  - MALAISE [None]
  - NITRITE URINE PRESENT [None]
  - WHITE BLOOD CELL COUNT INCREASED [None]
